FAERS Safety Report 6433478-2 (Version None)
Quarter: 2009Q4

REPORT INFORMATION
  Report Type: 
  Country: None (occurrence: None)
  Receive Date: 20091106
  Receipt Date: 20091106
  Transmission Date: 20100525
  Serious: Yes (Hospitalization)
  Sender: FDA-Public Use
  Company Number: None

PATIENT
  Age: 68 Year
  Sex: Female
  Weight: 63.9572 kg

DRUGS (8)
  1. PEMETREXED [Suspect]
     Indication: NON-SMALL CELL LUNG CANCER
     Dosage: 500 MG/M2 IV
     Route: 042
     Dates: start: 20090904, end: 20090917
  2. APRICOXIB/PLACEBO [Suspect]
     Indication: NON-SMALL CELL LUNG CANCER
     Dosage: 400 MG P.O. DAILY
     Route: 048
     Dates: start: 20090904, end: 20090917
  3. CARVEDILOL [Concomitant]
  4. CIPRO [Concomitant]
  5. FLUCONAZOLE [Concomitant]
  6. KEPPRA [Concomitant]
  7. LIPITOR [Concomitant]
  8. AMOXICILLIN [Concomitant]

REACTIONS (1)
  - DYSPNOEA [None]
